FAERS Safety Report 11247501 (Version 1)
Quarter: 2015Q3

REPORT INFORMATION
  Report Type: Other
  Country: GB (occurrence: GB)
  Receive Date: 20150708
  Receipt Date: 20150708
  Transmission Date: 20151125
  Serious: Yes (Hospitalization)
  Sender: FDA-Public Use
  Company Number: GB-MYLANLABS-2015M1021507

PATIENT

DRUGS (3)
  1. ACTAVIS UK AMITRIPTYLINE [Concomitant]
     Dosage: 10 MG, QD (AT NIGHT.)
     Route: 048
     Dates: start: 20150609
  2. FYBOGEL [Concomitant]
     Active Substance: PLANTAGO OVATA SEED
     Dosage: 3.5 G, BID (1 SACHET TWICE A DAY)
     Route: 048
  3. CARBAMAZEPINE. [Suspect]
     Active Substance: CARBAMAZEPINE
     Dosage: 100 MG, QD
     Route: 048
     Dates: start: 20150604, end: 20150610

REACTIONS (2)
  - Sepsis [Recovering/Resolving]
  - Hyponatraemia [Recovering/Resolving]

NARRATIVE: CASE EVENT DATE: 20150609
